FAERS Safety Report 8215736-4 (Version None)
Quarter: 2012Q1

REPORT INFORMATION
  Report Type: 
  Country: None (occurrence: None)
  Receive Date: 20120316
  Receipt Date: 20120313
  Transmission Date: 20120608
  Serious: Yes (Hospitalization)
  Sender: FDA-Public Use
  Company Number: GB-EISAI INC-E2020-10483-SPO-GB

PATIENT
  Age: 81 Year
  Sex: Female

DRUGS (6)
  1. ASPIRIN [Concomitant]
     Route: 048
  2. LEVOTHYROXINE SODIUM [Concomitant]
     Route: 048
  3. METFORMIN HYDROCHLORIDE [Concomitant]
     Route: 048
  4. DONEPEZIL HCL [Suspect]
     Route: 048
     Dates: end: 20120201
  5. SIMVASTATIN [Concomitant]
     Route: 048
  6. GLICLAZIDE [Concomitant]
     Route: 048

REACTIONS (3)
  - BRADYCARDIA [None]
  - UNRESPONSIVE TO STIMULI [None]
  - SYNCOPE [None]
